FAERS Safety Report 4576308-6 (Version None)
Quarter: 2005Q1

REPORT INFORMATION
  Report Type: 
  Country: None (occurrence: None)
  Receive Date: 20050207
  Receipt Date: 20050128
  Transmission Date: 20050727
  Serious: Yes (Hospitalization)
  Sender: FDA-Public Use
  Company Number: 2005022012

PATIENT
  Age: 70 Year
  Sex: Male

DRUGS (3)
  1. LYRICA [Suspect]
     Indication: NEUROPATHIC PAIN
     Dosage: 150 MG, ORAL
     Route: 048
     Dates: start: 20050111, end: 20050112
  2. DURAGESIC [Concomitant]
  3. NOVALGIN (METAMIZOLE SODIUM) [Concomitant]

REACTIONS (6)
  - CONFUSIONAL STATE [None]
  - DRUG INEFFECTIVE [None]
  - GRIMACING [None]
  - MYOCLONUS [None]
  - SOMNOLENCE [None]
  - THERAPY NON-RESPONDER [None]
